FAERS Safety Report 6490370-5 (Version None)
Quarter: 2009Q4

REPORT INFORMATION
  Report Type: 
  Country: None (occurrence: None)
  Receive Date: 20091211
  Receipt Date: 20091130
  Transmission Date: 20100525
  Serious: Yes (Hospitalization)
  Sender: FDA-Public Use
  Company Number: DE-BAYER-200941831GPV

PATIENT
  Age: 75 Year
  Sex: Female
  Weight: 67 kg

DRUGS (7)
  1. FLUDARABINE [Suspect]
     Indication: CHRONIC LYMPHOCYTIC LEUKAEMIA
     Dosage: TREATMENT DAYS DAYS 1, 3 AND 5 PER CYCLE
     Route: 042
     Dates: start: 20071218
  2. MCP [Concomitant]
     Dosage: TOTAL DAILY DOSE: 60 GTT
     Route: 048
     Dates: start: 20071201
  3. DILTIAZEM [Concomitant]
     Dosage: TOTAL DAILY DOSE: 180 MG
     Route: 048
  4. DIGITOXIN INJ [Concomitant]
     Route: 048
  5. PENTAERYTHRITOL TETRANITRATE [Concomitant]
     Route: 048
  6. ATACAND [Concomitant]
     Route: 048
  7. NEXIUM [Concomitant]
     Route: 048

REACTIONS (2)
  - GENERAL PHYSICAL HEALTH DETERIORATION [None]
  - VOMITING [None]
